FAERS Safety Report 19708045 (Version 1)
Quarter: 2021Q3

REPORT INFORMATION
  Report Type: Spontaneous
  Country: US (occurrence: US)
  Receive Date: 20210816
  Receipt Date: 20210816
  Transmission Date: 20211014
  Serious: No
  Sender: FDA-Public Use
  Company Number: US-009507513-2108USA000234

PATIENT
  Sex: Female
  Weight: 67.12 kg

DRUGS (3)
  1. INLYTA [Suspect]
     Active Substance: AXITINIB
     Indication: RENAL CELL CARCINOMA
     Dosage: 2 MG ORAL/2 TABLETS TWICE DAILY FOR 14 DAYS
     Route: 048
     Dates: start: 20210422, end: 20210504
  2. KEYTRUDA [Suspect]
     Active Substance: PEMBROLIZUMAB
     Dosage: UNK
     Dates: end: 2021
  3. INLYTA [Suspect]
     Active Substance: AXITINIB
     Dosage: 3 TABLETS TWICE DAILY
     Route: 048
     Dates: start: 20210505, end: 2021

REACTIONS (1)
  - Toxicity to various agents [Unknown]

NARRATIVE: CASE EVENT DATE: 2021
